FAERS Safety Report 16458228 (Version 1)
Quarter: 2019Q2

REPORT INFORMATION
  Report Type: Spontaneous
  Country: US (occurrence: US)
  Receive Date: 20190510
  Receipt Date: 20190510
  Transmission Date: 20190711
  Serious: No
  Sender: FDA-Public Use
  Company Number: None

PATIENT
  Age: 47 Year
  Sex: Female

DRUGS (2)
  1. TALTZ [Suspect]
     Active Substance: IXEKIZUMAB
     Indication: PSORIASIS
     Dosage: ?          OTHER FREQUENCY:WK12 THEN EVERY 4 WK;?
     Route: 058
     Dates: start: 201902
  2. TALTZ [Suspect]
     Active Substance: IXEKIZUMAB
     Indication: PUSTULAR PSORIASIS
     Dosage: ?          OTHER FREQUENCY:WK12 THEN EVERY 4 WK;?
     Route: 058
     Dates: start: 201902

REACTIONS (4)
  - Psoriasis [None]
  - Pneumonitis [None]
  - Rash macular [None]
  - Therapy cessation [None]
